FAERS Safety Report 6325420-X (Version None)
Quarter: 2009Q3

REPORT INFORMATION
  Report Type: 
  Country: None (occurrence: None)
  Receive Date: 20090824
  Receipt Date: 20090716
  Transmission Date: 20100115
  Serious: No
  Sender: FDA-Public Use
  Company Number: US-ABBOTT-09P-163-0586130-00

PATIENT
  Sex: Female

DRUGS (22)
  1. NIASPAN [Suspect]
     Indication: HIGH DENSITY LIPOPROTEIN DECREASED
     Route: 048
     Dates: start: 20090710
  2. NIASPAN [Suspect]
     Indication: BLOOD TRIGLYCERIDES INCREASED
  3. LEVOZYL [Concomitant]
     Indication: DRUG USE FOR UNKNOWN INDICATION
  4. DIOVAN [Concomitant]
     Indication: DRUG USE FOR UNKNOWN INDICATION
  5. FUROSEMIDE [Concomitant]
     Indication: DRUG USE FOR UNKNOWN INDICATION
  6. DEPAKOTE ER [Concomitant]
     Indication: DRUG USE FOR UNKNOWN INDICATION
  7. COGENTIN [Concomitant]
     Indication: DRUG USE FOR UNKNOWN INDICATION
  8. KLONOPIN [Concomitant]
     Indication: DRUG USE FOR UNKNOWN INDICATION
  9. AMBIEN [Concomitant]
     Indication: DRUG USE FOR UNKNOWN INDICATION
  10. POTASSIUM CHLORIDE [Concomitant]
     Indication: DRUG USE FOR UNKNOWN INDICATION
  11. SEROFOLIN NAC [Concomitant]
     Indication: DRUG USE FOR UNKNOWN INDICATION
  12. METROGEL [Concomitant]
     Indication: DRUG USE FOR UNKNOWN INDICATION
  13. ADVAIR HFA [Concomitant]
     Indication: DRUG USE FOR UNKNOWN INDICATION
  14. NABUMETONE [Concomitant]
     Indication: DRUG USE FOR UNKNOWN INDICATION
  15. VICODIN [Concomitant]
     Indication: PAIN
  16. ASPIRIN [Concomitant]
     Indication: DRUG USE FOR UNKNOWN INDICATION
     Route: 048
  17. CALTRATE + D [Concomitant]
     Indication: DRUG USE FOR UNKNOWN INDICATION
  18. VITAMIN D [Concomitant]
     Indication: DRUG USE FOR UNKNOWN INDICATION
  19. SALMON OIL [Concomitant]
     Indication: DRUG USE FOR UNKNOWN INDICATION
  20. M.V.I. [Concomitant]
     Indication: DRUG USE FOR UNKNOWN INDICATION
  21. ENTERRA [Concomitant]
     Indication: DRUG USE FOR UNKNOWN INDICATION
  22. LOTEMAX [Concomitant]
     Indication: DRUG USE FOR UNKNOWN INDICATION
     Route: 047

REACTIONS (3)
  - BLOOD GLUCOSE INCREASED [None]
  - DIARRHOEA [None]
  - NAUSEA [None]
